FAERS Safety Report 19865360 (Version 3)
Quarter: 2021Q4

REPORT INFORMATION
  Report Type: Report from Study
  Country: BR (occurrence: BR)
  Receive Date: 20210921
  Receipt Date: 20211004
  Transmission Date: 20220303
  Serious: Yes (Hospitalization)
  Sender: FDA-Public Use
  Company Number: BR-GLAXOSMITHKLINE-BR2021GSK196252

PATIENT
  Age: 55 Year
  Sex: Male

DRUGS (14)
  1. BELANTAMAB MAFODOTIN [Suspect]
     Active Substance: BELANTAMAB MAFODOTIN
     Indication: Plasma cell myeloma
     Dosage: 2.5 MG/KG ON DAY 1 OF EVERY 21 DAY CYCLE
     Route: 042
     Dates: start: 20210902
  2. PREGABALIN [Concomitant]
     Active Substance: PREGABALIN
     Indication: Pain
     Dosage: 75 MG, QD
     Route: 048
     Dates: start: 20210110, end: 20210620
  3. NORTRIPTYLINE [Concomitant]
     Active Substance: NORTRIPTYLINE
     Indication: Pain
     Dosage: 10 MG, QD
     Route: 048
     Dates: start: 20210110, end: 20210620
  4. METHADONE [Concomitant]
     Active Substance: METHADONE HYDROCHLORIDE
     Indication: Pain
     Dosage: 5 MG, QD
     Route: 048
     Dates: start: 20210110, end: 20210617
  5. DIPHENHYDRAMINE [Concomitant]
     Active Substance: DIPHENHYDRAMINE
  6. CYANOCOBALAMIN\PYRIDOXINE HYDROCHLORIDE\THIAMINE [Concomitant]
     Active Substance: CYANOCOBALAMIN\PYRIDOXINE HYDROCHLORIDE\THIAMINE
     Indication: Pain
     Dosage: 5000 DF, QD
     Route: 048
     Dates: start: 20210110
  7. BACTRIM [Concomitant]
     Active Substance: SULFAMETHOXAZOLE\TRIMETHOPRIM
     Indication: Prophylaxis
     Dosage: 800/160 MG, 3 TIMES PER WEEK
     Route: 048
     Dates: start: 20210110
  8. ACYCLOVIR [Concomitant]
     Active Substance: ACYCLOVIR
     Indication: Prophylaxis
     Dosage: 400 MG, Z(Q12H)
     Route: 048
     Dates: start: 20210110
  9. PANTOPRAZOLE [Concomitant]
     Active Substance: PANTOPRAZOLE
     Indication: Prophylaxis against gastrointestinal ulcer
     Dosage: 40 MG, QD
     Route: 048
     Dates: start: 20190120
  10. DOMPERIDONE [Concomitant]
     Active Substance: DOMPERIDONE
     Indication: Gastrooesophageal reflux disease
     Dosage: 10 MG, TID
     Route: 048
     Dates: start: 20190120, end: 20210617
  11. VITAMIN C [Concomitant]
     Active Substance: ASCORBIC ACID
     Indication: Supplementation therapy
     Dosage: UNK, QD
     Route: 048
     Dates: start: 20210210, end: 20210617
  12. VITAMIN K [Concomitant]
     Active Substance: PHYTONADIONE
     Indication: Supplementation therapy
     Dosage: UNK UNK, QD
     Route: 048
     Dates: start: 20210210, end: 20210617
  13. ZINC CHELATED [Concomitant]
     Indication: Supplementation therapy
     Dosage: UNK, QD
     Route: 048
     Dates: start: 20210210, end: 20210617
  14. MAGNESIUM MALATE [Concomitant]
     Active Substance: MAGNESIUM MALATE
     Indication: Supplementation therapy
     Dosage: UNK, QD
     Route: 048
     Dates: start: 20210210, end: 20210617

REACTIONS (1)
  - Transient global amnesia [Recovered/Resolved]

NARRATIVE: CASE EVENT DATE: 20210902
